FAERS Safety Report 9200831 (Version 4)
Quarter: 2014Q3

REPORT INFORMATION
  Report Type: Spontaneous
  Country: US (occurrence: US)
  Receive Date: 20130401
  Receipt Date: 20140813
  Transmission Date: 20150326
  Serious: Yes (Hospitalization)
  Sender: FDA-Public Use
  Company Number: US-BAYER-2013-038457

PATIENT
  Age: 31 Year
  Sex: Female
  Weight: 68.03 kg

DRUGS (2)
  1. ORTHO CYCLEN [Concomitant]
     Active Substance: ETHINYL ESTRADIOL\NORGESTIMATE
     Dosage: UNK
     Dates: start: 20061220
  2. MIRENA [Suspect]
     Active Substance: LEVONORGESTREL
     Indication: CONTRACEPTION
     Dosage: 20 MCG/24HR, CONT
     Route: 015
     Dates: start: 20070116, end: 20110919

REACTIONS (7)
  - Pregnancy with contraceptive device [None]
  - Injury [None]
  - Device dislocation [None]
  - Emotional distress [None]
  - Pain [None]
  - Drug ineffective [None]
  - Uterine perforation [None]

NARRATIVE: CASE EVENT DATE: 2009
